FAERS Safety Report 4728462-0 (Version None)
Quarter: 2005Q3

REPORT INFORMATION
  Report Type: 
  Country: None (occurrence: None)
  Receive Date: 20050729
  Receipt Date: 20050722
  Transmission Date: 20060218
  Serious: Yes (Other)
  Sender: FDA-Public Use
  Company Number: PHBS2005JP10811

PATIENT
  Sex: Female

DRUGS (2)
  1. RITALIN [Suspect]
     Indication: DEPRESSIVE SYMPTOM
     Route: 048
  2. ANTIPSYCHOTICS [Concomitant]
     Route: 065

REACTIONS (3)
  - LIP EXFOLIATION [None]
  - PARKINSON'S DISEASE [None]
  - POSTURE ABNORMAL [None]
